FAERS Safety Report 24374155 (Version 1)
Quarter: 2024Q3

REPORT INFORMATION
  Report Type: Spontaneous
  Country: FR (occurrence: FR)
  Receive Date: 20240927
  Receipt Date: 20240927
  Transmission Date: 20241016
  Serious: Yes (Hospitalization, Other)
  Sender: GILEAD
  Company Number: None

PATIENT
  Age: 64 Year
  Sex: Female

DRUGS (1)
  1. TRODELVY [Suspect]
     Active Substance: SACITUZUMAB GOVITECAN-HZIY
     Indication: Breast cancer metastatic
     Dosage: 10 MG/KG
     Route: 042
     Dates: start: 20240403, end: 20240717

REACTIONS (5)
  - General physical health deterioration [Unknown]
  - Neutropenia [Unknown]
  - Diarrhoea [Unknown]
  - Pyrexia [Unknown]
  - Dysuria [Unknown]

NARRATIVE: CASE EVENT DATE: 20240415
